FAERS Safety Report 7997929-4 (Version None)
Quarter: 2011Q4

REPORT INFORMATION
  Report Type: 
  Country: None (occurrence: None)
  Receive Date: 20111221
  Receipt Date: 20111215
  Transmission Date: 20120403
  Serious: Yes (Other)
  Sender: FDA-Public Use
  Company Number: PHHY2011AT109857

PATIENT
  Age: 69 Year
  Sex: Female
  Weight: 70 kg

DRUGS (1)
  1. ZOLEDRONOC ACID [Suspect]
     Indication: OSTEOPOROSIS
     Route: 042
     Dates: start: 20111114

REACTIONS (5)
  - HEADACHE [None]
  - MYALGIA [None]
  - CIRCULATORY COLLAPSE [None]
  - TOOTHACHE [None]
  - PAIN IN EXTREMITY [None]
